FAERS Safety Report 5286579-9 (Version None)
Quarter: 2007Q2

REPORT INFORMATION
  Report Type: 
  Country: None (occurrence: None)
  Receive Date: 20070404
  Receipt Date: 20070403
  Transmission Date: 20071010
  Serious: Yes (Hospitalization)
  Sender: FDA-Public Use
  Company Number: FR-BRISTOL-MYERS SQUIBB COMPANY-13737168

PATIENT
  Age: 70 Year
  Sex: Male

DRUGS (6)
  1. BLEOMYCIN SULFATE [Suspect]
     Indication: HODGKIN'S DISEASE
     Route: 042
     Dates: start: 20061023, end: 20061127
  2. ADRIBLASTINE [Suspect]
     Indication: HODGKIN'S DISEASE
     Route: 042
     Dates: start: 20061023, end: 20061127
  3. VELBE [Suspect]
     Indication: HODGKIN'S DISEASE
     Route: 042
     Dates: start: 20061023, end: 20061127
  4. NATULAN [Suspect]
     Indication: HODGKIN'S DISEASE
     Route: 048
     Dates: start: 20061023, end: 20061204
  5. SOLU-MEDROL [Concomitant]
     Route: 042
     Dates: start: 20061023, end: 20061127
  6. SOLUPRED [Concomitant]
     Route: 048
     Dates: start: 20061024, end: 20061210

REACTIONS (11)
  - ANAEMIA [None]
  - CHILLS [None]
  - CHOLESTASIS [None]
  - DYSPHAGIA [None]
  - HEPATITIS CHOLESTATIC [None]
  - HYPOTENSION [None]
  - LEUKOPENIA [None]
  - LIVEDO RETICULARIS [None]
  - LOSS OF CONSCIOUSNESS [None]
  - PYREXIA [None]
  - SEPTIC SHOCK [None]
